FAERS Safety Report 7197465-1 (Version None)
Quarter: 2010Q4

REPORT INFORMATION
  Report Type: 
  Country: None (occurrence: None)
  Receive Date: 20101227
  Receipt Date: 20101216
  Transmission Date: 20110411
  Serious: Yes (Hospitalization)
  Sender: FDA-Public Use
  Company Number: DE-BRISTOL-MYERS SQUIBB COMPANY-15456726

PATIENT
  Age: 84 Year
  Sex: Female
  Weight: 96 kg

DRUGS (1)
  1. ERBITUX [Suspect]
     Indication: COLORECTAL CANCER
     Dosage: 250MG/M2:06OCT TO 01DEC2010(56D) 250MG/M2:15DEC2010 TO ONG
     Route: 042
     Dates: start: 20101006

REACTIONS (1)
  - THROMBOSIS [None]
